FAERS Safety Report 7160469-9 (Version None)
Quarter: 2010Q4

REPORT INFORMATION
  Report Type: 
  Country: None (occurrence: None)
  Receive Date: 20101214
  Receipt Date: 20091125
  Transmission Date: 20110411
  Serious: No
  Sender: FDA-Public Use
  Company Number: US-AMGEN-KDL376900

PATIENT

DRUGS (11)
  1. ENBREL [Suspect]
     Indication: PRODUCT USED FOR UNKNOWN INDICATION
     Dosage: 50 MG, QWK
     Route: 058
  2. ALENDRONATE SODIUM [Concomitant]
     Dosage: 5 MG, UNK
  3. FAMOTIDINE [Concomitant]
     Dosage: 20 MG, UNK
  4. VENLAFAXINE HCL [Concomitant]
     Dosage: 37.5 MG, UNK
  5. BUSPIRONE HYDROCHLORIDE [Concomitant]
     Dosage: 5 MG, UNK
  6. MULTI-VITAMINS [Concomitant]
     Dosage: UNK UNK, UNK
  7. SULFASALAZINE [Concomitant]
     Dosage: 500 MG, UNK
  8. FISH OIL [Concomitant]
     Dosage: UNK UNK, UNK
  9. CALCIUM [Concomitant]
     Dosage: UNK UNK, UNK
  10. FISH OIL [Concomitant]
     Dosage: UNK UNK, UNK
  11. FIORINAL [Concomitant]
     Dosage: UNK UNK, UNK

REACTIONS (6)
  - INJECTION SITE ERYTHEMA [None]
  - INJECTION SITE PRURITUS [None]
  - INJECTION SITE REACTION [None]
  - INJECTION SITE SWELLING [None]
  - MIGRAINE [None]
  - NAUSEA [None]
